FAERS Safety Report 7769935-6 (Version None)
Quarter: 2011Q3

REPORT INFORMATION
  Report Type: 
  Country: None (occurrence: None)
  Receive Date: 20110922
  Receipt Date: 20110915
  Transmission Date: 20111222
  Serious: Yes (Other)
  Sender: FDA-Public Use
  Company Number: US-GLAXOSMITHKLINE-A0917024A

PATIENT
  Age: 51 Year
  Sex: Female

DRUGS (8)
  1. PROMACTA [Suspect]
     Indication: IDIOPATHIC THROMBOCYTOPENIC PURPURA
     Route: 048
     Dates: start: 20101117
  2. METOPROLOL TARTRATE [Concomitant]
  3. IMMUNE GLOBULIN INTRAVENOUS (HUMAN) [Concomitant]
     Indication: IDIOPATHIC THROMBOCYTOPENIC PURPURA
     Dates: start: 20100810
  4. MORPHINE [Concomitant]
  5. CODEINE SULFATE [Concomitant]
  6. PENICILLIN [Concomitant]
  7. HYDROCHLOROTHIAZIDE [Concomitant]
  8. VITAMIN B-12 [Concomitant]

REACTIONS (1)
  - LIVER FUNCTION TEST ABNORMAL [None]
